FAERS Safety Report 6537974-9 (Version None)
Quarter: 2010Q1

REPORT INFORMATION
  Report Type: 
  Country: None (occurrence: None)
  Receive Date: 20100114
  Receipt Date: 20100104
  Transmission Date: 20100710
  Serious: Yes (Death)
  Sender: FDA-Public Use
  Company Number: US-PFIZER INC-2010000573

PATIENT
  Age: 46 Year
  Sex: Female

DRUGS (10)
  1. ALPRAZOLAM [Suspect]
     Route: 048
  2. OXYCODONE [Suspect]
     Route: 048
  3. PROMETHAZINE W/ CODEINE [Suspect]
     Route: 048
  4. TEMAZEPAM [Suspect]
     Route: 048
  5. CARBAMAZEPINE [Suspect]
     Route: 048
  6. TRAZODONE [Suspect]
     Route: 048
  7. DIPHENHYDRAMINE [Suspect]
     Route: 048
  8. DIAZEPAM [Suspect]
     Route: 048
  9. CARISOPRODOL [Suspect]
     Route: 048
  10. MEPROBAMATE [Suspect]
     Route: 048

REACTIONS (3)
  - ACCIDENTAL EXPOSURE [None]
  - CARDIAC ARREST [None]
  - RESPIRATORY ARREST [None]
